FAERS Safety Report 8105035-3 (Version None)
Quarter: 2012Q1

REPORT INFORMATION
  Report Type: 
  Country: None (occurrence: None)
  Receive Date: 20120201
  Receipt Date: 20120130
  Transmission Date: 20120608
  Serious: Yes (Disabling)
  Sender: FDA-Public Use
  Company Number: DE-GLAXOSMITHKLINE-D0073704A

PATIENT
  Age: 68 Year
  Sex: Male

DRUGS (1)
  1. VOTRIENT [Suspect]
     Indication: METASTATIC RENAL CELL CARCINOMA
     Dosage: 200MG PER DAY
     Route: 048

REACTIONS (3)
  - EXTREMITY NECROSIS [None]
  - PERIPHERAL EMBOLISM [None]
  - FINGER AMPUTATION [None]
